FAERS Safety Report 7318624-0 (Version None)
Quarter: 2011Q1

REPORT INFORMATION
  Report Type: 
  Country: None (occurrence: None)
  Receive Date: 20110223
  Receipt Date: 20110223
  Transmission Date: 20110831
  Serious: Yes (Life-Threatening)
  Sender: FDA-Public Use
  Company Number: None

PATIENT
  Age: 89 Year
  Sex: Male
  Weight: 93 kg

DRUGS (3)
  1. ZYVOX [Suspect]
     Indication: PNEUMONIA
     Dosage: 600 MG EVERY 12 HOURS IV
     Route: 042
     Dates: start: 20110213, end: 20110219
  2. ZYVOX [Suspect]
     Indication: DRUG HYPERSENSITIVITY
     Dosage: 600 MG EVERY 12 HOURS IV
     Route: 042
     Dates: start: 20110213, end: 20110219
  3. ZYVOX [Suspect]
     Indication: EMPYEMA
     Dosage: 600 MG EVERY 12 HOURS IV
     Route: 042
     Dates: start: 20110213, end: 20110219

REACTIONS (1)
  - VENTRICULAR TACHYCARDIA [None]
